FAERS Safety Report 5573187-5 (Version None)
Quarter: 2007Q4

REPORT INFORMATION
  Report Type: 
  Country: None (occurrence: None)
  Receive Date: 20071224
  Receipt Date: 20071218
  Transmission Date: 20080405
  Serious: Yes (Hospitalization)
  Sender: FDA-Public Use
  Company Number: JP-BRISTOL-MYERS SQUIBB COMPANY-13929369

PATIENT
  Age: 59 Year
  Sex: Female

DRUGS (8)
  1. ABATACEPT [Suspect]
     Indication: RHEUMATOID ARTHRITIS
     Route: 041
     Dates: start: 20070822, end: 20070905
  2. MOBIC [Suspect]
     Indication: RHEUMATOID ARTHRITIS
     Dosage: GREATER/EQUAL TO 12 WK PRIOR TO ENROLLMENT.DOSAGE:10MG STD
     Route: 048
     Dates: end: 20071003
  3. VOLTAREN [Suspect]
     Indication: RHEUMATOID ARTHRITIS
     Dosage: GREATER/EQUAL TO 12 WK PRIOR TO ENROLLMENT. GIVEN AS 50 MG IN CONMED LIST.
     Route: 054
     Dates: end: 20071003
  4. PREDNISOLONE [Concomitant]
     Indication: RHEUMATOID ARTHRITIS
     Dosage: 12 WEEKS PRIOR TO ENROLLMENT.
     Route: 048
     Dates: end: 20071003
  5. KETOPROFEN [Concomitant]
     Indication: RHEUMATOID ARTHRITIS
     Dosage: PRIOR TO OBTAINING IC.
     Route: 061
     Dates: end: 20071003
  6. FAMOTIDINE [Concomitant]
     Indication: PROPHYLAXIS
     Dosage: PRIOR TO OBTAINING IC.
     Route: 048
     Dates: end: 20071003
  7. LIPITOR [Concomitant]
     Indication: HYPERLIPIDAEMIA
     Dosage: PRIOR TO OBTAINING IC.
     Route: 048
     Dates: end: 20071003
  8. GLYSENNID [Concomitant]
     Indication: CONSTIPATION
     Dosage: PRIOR TO OBTAINING IC.
     Route: 048
     Dates: end: 20071003

REACTIONS (2)
  - GASTRIC ULCER [None]
  - INFLAMMATORY BOWEL DISEASE [None]
